FAERS Safety Report 25478404 (Version 2)
Quarter: 2025Q3

REPORT INFORMATION
  Report Type: Spontaneous
  Country: US (occurrence: US)
  Receive Date: 20250625
  Receipt Date: 20250701
  Transmission Date: 20251020
  Serious: Yes (Other)
  Sender: AMGEN
  Company Number: US-AMGEN-USASP2025119228

PATIENT
  Age: 84 Year
  Sex: Male

DRUGS (13)
  1. OTEZLA [Suspect]
     Active Substance: APREMILAST
     Indication: Psoriatic arthropathy
     Route: 065
  2. ZOLOFT [Concomitant]
     Active Substance: SERTRALINE HYDROCHLORIDE
  3. CRESTOR [Concomitant]
     Active Substance: ROSUVASTATIN CALCIUM
  4. FOLIC ACID [Concomitant]
     Active Substance: FOLIC ACID
  5. METHOTREXATE [Concomitant]
     Active Substance: METHOTREXATE
  6. CARDURA [Concomitant]
     Active Substance: DOXAZOSIN MESYLATE
  7. NORVASC [Concomitant]
     Active Substance: AMLODIPINE BESYLATE
  8. TOPROL XL [Concomitant]
     Active Substance: METOPROLOL SUCCINATE
  9. VITAMIN E [Concomitant]
     Active Substance: .ALPHA.-TOCOPHEROL
  10. ZINC [Concomitant]
     Active Substance: ZINC
  11. VITAMIN D [Concomitant]
     Active Substance: VITAMIN D NOS
  12. ASPIRIN [Concomitant]
     Active Substance: ASPIRIN
  13. TREMFYA [Concomitant]
     Active Substance: GUSELKUMAB
     Dates: start: 20250612

REACTIONS (9)
  - Thrombosis [Unknown]
  - Psoriatic arthropathy [Unknown]
  - Drug hypersensitivity [Unknown]
  - Prostatomegaly [Unknown]
  - Abdominal pain upper [Unknown]
  - Weight decreased [Unknown]
  - Diarrhoea [Unknown]
  - Dizziness [Unknown]
  - Ear infection [Recovering/Resolving]
